FAERS Safety Report 18737473 (Version 1)
Quarter: 2021Q1

REPORT INFORMATION
  Report Type: Spontaneous
  Country: CA (occurrence: CA)
  Receive Date: 20210113
  Receipt Date: 20210113
  Transmission Date: 20210419
  Serious: Yes (Disabling)
  Sender: FDA-Public Use
  Company Number: CA-ALLERGAN-2101637US

PATIENT
  Sex: Female

DRUGS (3)
  1. BOTOX [Suspect]
     Active Substance: ONABOTULINUMTOXINA
     Indication: HEADACHE
     Dosage: 200 UNITS, SINGLE
     Route: 030
  2. ATIVAN [Concomitant]
     Active Substance: LORAZEPAM
  3. TOPAMAX [Concomitant]
     Active Substance: TOPIRAMATE

REACTIONS (2)
  - Drop attacks [Recovered/Resolved]
  - Off label use [Unknown]
